FAERS Safety Report 13100584 (Version 1)
Quarter: 2017Q1

REPORT INFORMATION
  Report Type: Spontaneous
  Country: US (occurrence: US)
  Receive Date: 20170110
  Receipt Date: 20170110
  Transmission Date: 20170428
  Serious: Yes (Other)
  Sender: FDA-Public Use
  Company Number: US-LANNETT COMPANY, INC.-US-2017LAN000006

PATIENT
  Age: 41 Year
  Sex: Female

DRUGS (2)
  1. PEMBROLIZUMAB. [Suspect]
     Active Substance: PEMBROLIZUMAB
     Indication: MALIGNANT MELANOMA
     Dosage: 2 MG/KG, Q 3 WEEKS FOR 10 CYCLES
  2. OMEPRAZOLE. [Suspect]
     Active Substance: OMEPRAZOLE
     Indication: PRODUCT USED FOR UNKNOWN INDICATION

REACTIONS (2)
  - Tubulointerstitial nephritis [Recovered/Resolved]
  - Acute kidney injury [Recovered/Resolved]
